FAERS Safety Report 21798939 (Version 3)
Quarter: 2024Q1

REPORT INFORMATION
  Report Type: Spontaneous
  Country: US (occurrence: US)
  Receive Date: 20221230
  Receipt Date: 20240115
  Transmission Date: 20240410
  Serious: Yes (Other)
  Sender: FDA-Public Use
  Company Number: US-BRISTOL-MYERS SQUIBB COMPANY-2022-160632

PATIENT
  Age: 69 Year
  Sex: Male

DRUGS (1)
  1. POMALYST [Suspect]
     Active Substance: POMALIDOMIDE
     Indication: Plasma cell myeloma
     Dosage: FREQUENCY: QD FOR 21 DAYS/QD
     Route: 048

REACTIONS (8)
  - Rash [Unknown]
  - Urinary tract infection [Unknown]
  - Neuropathy peripheral [Unknown]
  - Muscle spasms [Unknown]
  - Constipation [Unknown]
  - Pruritus [Unknown]
  - Rhinorrhoea [Unknown]
  - Illness [Recovering/Resolving]

NARRATIVE: CASE EVENT DATE: 20231201
